FAERS Safety Report 24158605 (Version 1)
Quarter: 2024Q3

REPORT INFORMATION
  Report Type: Spontaneous
  Country: GB (occurrence: GB)
  Receive Date: 20240731
  Receipt Date: 20240731
  Transmission Date: 20241016
  Serious: Yes (Other)
  Sender: PFIZER
  Company Number: None

PATIENT
  Age: 31 Year
  Sex: Female
  Weight: 75 kg

DRUGS (1)
  1. DEPO-PROVERA [Suspect]
     Active Substance: MEDROXYPROGESTERONE ACETATE
     Indication: Contraception
     Dosage: UNK
     Dates: start: 20150101, end: 20220101

REACTIONS (3)
  - Wrist fracture [Recovered/Resolved]
  - Ankle fracture [Unknown]
  - Hand fracture [Unknown]

NARRATIVE: CASE EVENT DATE: 20220601
